FAERS Safety Report 7806211-7 (Version None)
Quarter: 2011Q4

REPORT INFORMATION
  Report Type: 
  Country: None (occurrence: None)
  Receive Date: 20111007
  Receipt Date: 20111007
  Transmission Date: 20120403
  Serious: Yes (Life-Threatening)
  Sender: FDA-Public Use
  Company Number: None

PATIENT
  Age: 6 Year
  Sex: Male
  Weight: 30.391 kg

DRUGS (1)
  1. RISPERIDONE [Suspect]
     Indication: ABNORMAL BEHAVIOUR
     Dates: start: 20110101, end: 20110601

REACTIONS (16)
  - ABNORMAL BEHAVIOUR [None]
  - MUSCULOSKELETAL STIFFNESS [None]
  - THIRST [None]
  - INCREASED APPETITE [None]
  - POLLAKIURIA [None]
  - CONSTIPATION [None]
  - DRY MOUTH [None]
  - MUSCLE SPASMS [None]
  - CONFUSIONAL STATE [None]
  - CHILLS [None]
  - THINKING ABNORMAL [None]
  - HEART RATE INCREASED [None]
  - FLUSHING [None]
  - OBSESSIVE THOUGHTS [None]
  - BREATH ODOUR [None]
  - HYPERHIDROSIS [None]
